FAERS Safety Report 10310037 (Version 5)
Quarter: 2015Q1

REPORT INFORMATION
  Report Type: Report from Study
  Country: US (occurrence: US)
  Receive Date: 20140717
  Receipt Date: 20150216
  Transmission Date: 20150720
  Serious: No
  Sender: FDA-Public Use
  Company Number: PHEH2014US007015

PATIENT
  Age: 69 Year
  Sex: Female
  Weight: 79 kg

DRUGS (5)
  1. ARMOUR THYROID [Concomitant]
     Active Substance: THYROID, PORCINE\THYROID, UNSPECIFIED
     Indication: HYPOTHYROIDISM
     Dosage: 60 MG/KG, QD
     Route: 048
  2. AFINITOR [Suspect]
     Active Substance: EVEROLIMUS
     Dosage: 5 MG, UNK
     Route: 048
     Dates: start: 20140711, end: 20141204
  3. AFINITOR [Suspect]
     Active Substance: EVEROLIMUS
     Indication: ANGIOMYOLIPOMA
     Dosage: 10 MG, QD
     Route: 048
     Dates: start: 20140308, end: 20140710
  4. ANASTROZOLE. [Concomitant]
     Active Substance: ANASTROZOLE
     Indication: PRODUCT USED FOR UNKNOWN INDICATION
     Dosage: 1 MG, QD
     Route: 048
  5. ANTIOXIDANT                        /02147801/ [Concomitant]
     Indication: PRODUCT USED FOR UNKNOWN INDICATION
     Route: 065

REACTIONS (19)
  - Thirst [Not Recovered/Not Resolved]
  - Breast pain [Unknown]
  - Ligament sprain [Unknown]
  - Fatigue [Unknown]
  - Insomnia [Unknown]
  - Fibula fracture [Unknown]
  - Skin exfoliation [Unknown]
  - Abdominal discomfort [Unknown]
  - Anaemia [Unknown]
  - Joint swelling [Not Recovered/Not Resolved]
  - Impaired healing [Unknown]
  - Diarrhoea [Unknown]
  - Enzyme abnormality [Unknown]
  - Contusion [Unknown]
  - Blood test abnormal [Unknown]
  - Faeces discoloured [Unknown]
  - Rash erythematous [Unknown]
  - Peripheral swelling [Not Recovered/Not Resolved]
  - Hepatic enzyme abnormal [Unknown]

NARRATIVE: CASE EVENT DATE: 20140329
